FAERS Safety Report 20083226 (Version 2)
Quarter: 2021Q4

REPORT INFORMATION
  Report Type: Spontaneous
  Country: DE (occurrence: DE)
  Receive Date: 20211117
  Receipt Date: 20211122
  Transmission Date: 20220303
  Serious: Yes (Hospitalization)
  Sender: FDA-Public Use
  Company Number: DE-ADRED-07064-01

PATIENT
  Age: 82 Year
  Sex: Female

DRUGS (17)
  1. MIRTAZAPINE [Suspect]
     Active Substance: MIRTAZAPINE
     Indication: Product used for unknown indication
     Dosage: 15 MILLIGRAM, QD, 0-0-1-0, TABLETTEN
     Route: 048
  2. ESCITALOPRAM [Suspect]
     Active Substance: ESCITALOPRAM OXALATE
     Indication: Product used for unknown indication
     Dosage: 10 MILLIGRAM, 2-0-1-0, TABLETTEN
     Route: 048
  3. METOPROLOL [Suspect]
     Active Substance: METOPROLOL
     Indication: Product used for unknown indication
     Dosage: 23.7 MILLIGRAM, 1-0-1-0, RETARD-TABLETTEN
     Route: 048
  4. LETROZOLE [Suspect]
     Active Substance: LETROZOLE
     Indication: Product used for unknown indication
     Dosage: 2.5 MILLIGRAM, QD, 1-0-0-0, TABLETTEN
     Route: 048
  5. XARELTO [Suspect]
     Active Substance: RIVAROXABAN
     Indication: Product used for unknown indication
     Dosage: 15 MILLIGRAM, QD, 1-0-0-0, TABLETTEN
     Route: 048
  6. TOCILIZUMAB [Suspect]
     Active Substance: TOCILIZUMAB
     Indication: Product used for unknown indication
     Dosage: 162 MG, THURSDAYS, SOLUTION FOR INJECTION/INFUSION SOLUTION
     Route: 058
  7. LEVETIRACETAM [Concomitant]
     Active Substance: LEVETIRACETAM
     Dosage: 1000 MILLIGRAM, 1-0-1-0, TABLETTEN
     Route: 048
  8. ATORVASTATIN [Concomitant]
     Active Substance: ATORVASTATIN
     Dosage: 20 MILLIGRAM, QD, 0-0-2-0, TABLETTEN
     Route: 048
  9. DIGITOXIN [Concomitant]
     Active Substance: DIGITOXIN
     Dosage: 0.05 MG, MONDAY WEDNESDAY FRIDAY MORNING ONE TABLET, TABLETS
     Route: 048
  10. VITAMIN B12                        /00056201/ [Concomitant]
     Dosage: 1000 MICROGRAM, W?CHENTLICH, INJEKTIONS-/INFUSIONSL?SUNG
     Route: 058
  11. DULCOLAX (BISACODYL) [Concomitant]
     Active Substance: BISACODYL
     Indication: Product used for unknown indication
     Dosage: 10 MILLIGRAM, 10 MG, AS NEEDED, COATED TABLETS
     Route: 048
  12. PERENTEROL                         /00243701/ [Concomitant]
     Dosage: 250 MILLIGRAM, BEI BEDARF, KAPSELN
     Route: 048
  13. PANTOPRAZOLE [Concomitant]
     Active Substance: PANTOPRAZOLE
     Dosage: 40 MILLIGRAM, 1-0-0-0, TABLETTEN
     Route: 048
  14. TORSEMIDE [Concomitant]
     Active Substance: TORSEMIDE
     Dosage: 10 MILLIGRAM, 1-0-0-0, TABLETTEN
     Route: 048
  15. METAMIZOL                          /06276701/ [Concomitant]
     Dosage: BEI BEDARF, TROPFEN
     Route: 048
  16. NITRENDIPINE [Concomitant]
     Active Substance: NITRENDIPINE
     Dosage: AS NEEDED, VIAL
     Route: 060
  17. CALCIUM VITAMIN C                  /00436301/ [Concomitant]
     Dosage: 400 IE, 1-1-0-0, EFFERVESCENT TABLETS
     Route: 048

REACTIONS (2)
  - Dizziness [Unknown]
  - Fall [Unknown]
